FAERS Safety Report 16534045 (Version 1)
Quarter: 2019Q3

REPORT INFORMATION
  Report Type: Spontaneous
  Country: US (occurrence: US)
  Receive Date: 20190705
  Receipt Date: 20190705
  Transmission Date: 20191004
  Serious: No
  Sender: FDA-Public Use
  Company Number: US-BAYER-2019-126430

PATIENT
  Age: 19 Year
  Sex: Female

DRUGS (2)
  1. MIRENA [Suspect]
     Active Substance: LEVONORGESTREL
     Dosage: 20 MCG/24HR, CONT
     Route: 015
     Dates: start: 201408
  2. MIRENA [Suspect]
     Active Substance: LEVONORGESTREL

REACTIONS (3)
  - Medical device discomfort [Not Recovered/Not Resolved]
  - Headache [None]
  - Abdominal pain lower [None]

NARRATIVE: CASE EVENT DATE: 201906
